FAERS Safety Report 9833973 (Version 3)
Quarter: 2014Q1

REPORT INFORMATION
  Report Type: Report from Study
  Country: CA (occurrence: CA)
  Receive Date: 20140122
  Receipt Date: 20140225
  Transmission Date: 20141002
  Serious: Yes (Other)
  Sender: FDA-Public Use
  Company Number: CA-ROCHE-1299774

PATIENT
  Age: 35 Year
  Sex: Female

DRUGS (8)
  1. ACTEMRA [Suspect]
     Indication: RHEUMATOID ARTHRITIS
     Route: 042
     Dates: start: 20131004, end: 20131101
  2. LOSEC [Concomitant]
  3. DOMPERIDONE [Concomitant]
  4. MODULON [Concomitant]
  5. HYDROCHLOROTHIAZIDE [Concomitant]
  6. APO-DIVALPROEX [Concomitant]
  7. LYRICA [Concomitant]
  8. METHOTREXATE [Concomitant]
     Route: 065

REACTIONS (2)
  - Blood test abnormal [Not Recovered/Not Resolved]
  - Nausea [Recovered/Resolved]
